FAERS Safety Report 5348321-2 (Version None)
Quarter: 2007Q2

REPORT INFORMATION
  Report Type: 
  Country: None (occurrence: None)
  Receive Date: 20070606
  Receipt Date: 20070525
  Transmission Date: 20071010
  Serious: Yes (Life-Threatening)
  Sender: FDA-Public Use
  Company Number: US-GENENTECH-202989

PATIENT
  Sex: Female
  Weight: 86.621 kg

DRUGS (3)
  1. XOLAIR [Suspect]
     Indication: ASTHMA
     Dosage: 225 MG, Q2W
     Route: 058
     Dates: start: 20031020
  2. ADVAIR DISKUS 100/50 [Concomitant]
  3. ZYRTEC [Concomitant]

REACTIONS (6)
  - ANAPHYLACTIC REACTION [None]
  - CHEST DISCOMFORT [None]
  - COUGH [None]
  - PRURITUS [None]
  - PULMONARY FUNCTION TEST DECREASED [None]
  - URTICARIA [None]
